FAERS Safety Report 25076742 (Version 1)
Quarter: 2025Q1

REPORT INFORMATION
  Report Type: Report from Study
  Country: KR (occurrence: KR)
  Receive Date: 20250313
  Receipt Date: 20250313
  Transmission Date: 20250408
  Serious: Yes (Other)
  Sender: ABBVIE
  Company Number: KR-ABBVIE-6168778

PATIENT
  Age: 38 Year
  Sex: Male

DRUGS (8)
  1. RINVOQ [Suspect]
     Active Substance: UPADACITINIB
     Indication: Dermatitis atopic
     Dosage: FORM STRENGTH: 15 MG
     Route: 048
     Dates: start: 20230503, end: 20231018
  2. RINVOQ [Suspect]
     Active Substance: UPADACITINIB
     Indication: Dermatitis atopic
     Dosage: FORM STRENGTH: 15 MG
     Route: 048
     Dates: start: 20231102
  3. Esperson [Concomitant]
     Indication: Dermatitis atopic
     Dosage: UNIT DOSE : 2 BOTTLE, STRENGTH: 0.25 PERCENT
     Route: 061
     Dates: start: 20230503, end: 20230530
  4. Beposta sr [Concomitant]
     Indication: Dermatitis atopic
     Route: 048
     Dates: start: 20230503
  5. Ebastel boryung [Concomitant]
     Indication: Dermatitis atopic
     Route: 048
     Dates: start: 20230503
  6. PREDNISOLONE VALERATE ACETATE [Concomitant]
     Active Substance: PREDNISOLONE VALERATE ACETATE
     Indication: Dermatitis atopic
     Dosage: STRENGTH: 20G
     Route: 061
     Dates: start: 20230503
  7. Topisol [Concomitant]
     Indication: Dermatitis atopic
     Dosage: MILK, STRENGTH: 80G
     Route: 061
     Dates: start: 20230503
  8. ELIDEL [Concomitant]
     Active Substance: PIMECROLIMUS
     Indication: Dermatitis atopic
     Dosage: 1 PERCENT, 30G
     Route: 061
     Dates: start: 20230503

REACTIONS (1)
  - Acute kidney injury [Recovered/Resolved]

NARRATIVE: CASE EVENT DATE: 20231001
